FAERS Safety Report 14908058 (Version 2)
Quarter: 2018Q2

REPORT INFORMATION
  Report Type: Spontaneous
  Country: BG (occurrence: BG)
  Receive Date: 20180517
  Receipt Date: 20180529
  Transmission Date: 20180711
  Serious: Yes (Hospitalization, Other)
  Sender: FDA-Public Use
  Company Number: BG-BAYER-2018-090379

PATIENT
  Age: 50 Year
  Sex: Male

DRUGS (3)
  1. NEXAVAR [Suspect]
     Active Substance: SORAFENIB
     Indication: HEPATOCELLULAR CARCINOMA
     Dosage: 800 MG DAILY
     Route: 048
     Dates: start: 20160106, end: 201602
  2. NEXAVAR [Suspect]
     Active Substance: SORAFENIB
     Indication: HEPATOCELLULAR CARCINOMA
     Dosage: UNK
     Dates: start: 20160203, end: 20160302
  3. NEXAVAR [Suspect]
     Active Substance: SORAFENIB
     Indication: HEPATOCELLULAR CARCINOMA
     Dosage: DAILY DOSE 400 MG

REACTIONS (9)
  - Hepatorenal syndrome [Recovered/Resolved]
  - Ascites [None]
  - Peripheral swelling [None]
  - Blood creatinine increased [Recovering/Resolving]
  - Ascites [None]
  - Electrolyte imbalance [Recovering/Resolving]
  - Hepatosplenomegaly [None]
  - Blood creatinine increased [None]
  - Blood urea increased [Recovering/Resolving]

NARRATIVE: CASE EVENT DATE: 20160203
